FAERS Safety Report 9718725 (Version 1)
Quarter: 2013Q4

REPORT INFORMATION
  Report Type: Not Available
  Country: US (occurrence: US)
  Receive Date: 20131125
  Receipt Date: 20131125
  Transmission Date: 20140711
  Serious: No
  Sender: FDA-Public Use
  Company Number: US-H. LUNDBECK A/S-DKLU1093325

PATIENT
  Age: 18 Year
  Sex: Male

DRUGS (2)
  1. ONFI [Suspect]
     Indication: EPILEPSY
     Dates: start: 201301
  2. ONFI [Suspect]
     Dates: start: 201301

REACTIONS (2)
  - Throat irritation [Unknown]
  - Palpitations [Unknown]
